FAERS Safety Report 5050839-7 (Version None)
Quarter: 2006Q3

REPORT INFORMATION
  Report Type: 
  Country: None (occurrence: None)
  Receive Date: 20060710
  Receipt Date: 20060628
  Transmission Date: 20061208
  Serious: Yes (Other)
  Sender: FDA-Public Use
  Company Number: 200612733GDS

PATIENT
  Age: 61 Year
  Sex: Female

DRUGS (5)
  1. AVELOX [Suspect]
     Dosage: 400 MG, ONCE,
  2. ALTACE [Concomitant]
  3. FLOVENT [Concomitant]
  4. MODURET [Concomitant]
  5. SALBUTAMOL [Concomitant]

REACTIONS (7)
  - ASTHENIA [None]
  - DYSPNOEA [None]
  - EPISTAXIS [None]
  - HYPERTENSION [None]
  - HYPOTENSION [None]
  - LOSS OF CONSCIOUSNESS [None]
  - VOMITING [None]
